FAERS Safety Report 25365194 (Version 2)
Quarter: 2025Q2

REPORT INFORMATION
  Report Type: Spontaneous
  Country: US (occurrence: US)
  Receive Date: 20250527
  Receipt Date: 20250529
  Transmission Date: 20250717
  Serious: No
  Sender: SANOFI AVENTIS
  Company Number: US-SA-2025SA148759

PATIENT
  Age: 24 Year
  Sex: Female

DRUGS (1)
  1. DUPIXENT [Suspect]
     Active Substance: DUPILUMAB
     Indication: Nasal polyps
     Dosage: 200 MG, QOW
     Route: 058

REACTIONS (8)
  - Perioral dermatitis [Recovered/Resolved]
  - Skin swelling [Recovered/Resolved]
  - Muscle twitching [Unknown]
  - Seasonal allergy [Unknown]
  - Condition aggravated [Unknown]
  - Nasal congestion [Unknown]
  - Erythema [Recovered/Resolved]
  - Incorrect dose administered [Unknown]

NARRATIVE: CASE EVENT DATE: 20250101
